FAERS Safety Report 24790524 (Version 1)
Quarter: 2024Q4

REPORT INFORMATION
  Report Type: Spontaneous
  Country: DE (occurrence: DE)
  Receive Date: 20241230
  Receipt Date: 20241230
  Transmission Date: 20250114
  Serious: Yes (Other)
  Sender: NOVARTIS
  Company Number: DE-002147023-NVSC2024DE245830

PATIENT
  Age: 38 Year
  Sex: Female
  Weight: 57.5 kg

DRUGS (1)
  1. COSENTYX [Suspect]
     Active Substance: SECUKINUMAB
     Indication: Psoriatic arthropathy
     Dosage: 300 MG
     Route: 065
     Dates: start: 201706, end: 201805

REACTIONS (14)
  - Cachexia [Unknown]
  - Anastomotic haemorrhage [Unknown]
  - Diverticulum intestinal [Unknown]
  - Fibromyalgia [Unknown]
  - Large intestine polyp [Unknown]
  - Stenosis [Unknown]
  - Proctitis [Unknown]
  - Diarrhoea [Unknown]
  - Fibrosis [Unknown]
  - Lymphoid tissue hyperplasia [Unknown]
  - Adhesion [Unknown]
  - Paradoxical pressor response [Unknown]
  - Gastrointestinal microorganism overgrowth [Unknown]
  - Neoplasm [Unknown]

NARRATIVE: CASE EVENT DATE: 20180830
